FAERS Safety Report 5559616-1 (Version None)
Quarter: 2007Q4

REPORT INFORMATION
  Report Type: 
  Country: None (occurrence: None)
  Receive Date: 20071214
  Receipt Date: 20071005
  Transmission Date: 20080405
  Serious: No
  Sender: FDA-Public Use
  Company Number: US-ABBOTT-07P-163-0420104-00

PATIENT
  Sex: Female
  Weight: 134 kg

DRUGS (16)
  1. HUMIRA [Suspect]
     Indication: CROHN'S DISEASE
     Route: 058
     Dates: start: 20070926
  2. HUMIRA [Suspect]
     Route: 058
     Dates: start: 20071010
  3. HUMIRA [Suspect]
     Route: 058
  4. MESALAMINE [Concomitant]
     Indication: CROHN'S DISEASE
     Dosage: TWO 500 MILLIGRAMS CAPSULE
     Route: 048
  5. MERCAPTOPURINE [Concomitant]
     Indication: CROHN'S DISEASE
     Dosage: ONE 50 MILLIGRAMS
     Route: 048
  6. LEVOTHYROXINE SODIUM [Concomitant]
     Indication: THYROIDECTOMY
     Route: 048
  7. HYDROCHLOROTHIAZIDE [Concomitant]
     Indication: SWELLING
     Route: 048
  8. RABEPRAZOLE SODIUM [Concomitant]
     Indication: GASTROOESOPHAGEAL REFLUX DISEASE
     Dosage: ONE 20 MILLIGRAMS
     Route: 048
  9. WELLBUTRIN XL [Concomitant]
     Indication: ANTIDEPRESSANT THERAPY
     Route: 048
  10. BIOTIN [Concomitant]
     Indication: VITAMIN SUPPLEMENTATION
     Route: 048
  11. CARISOPRODOL [Concomitant]
     Indication: ARTHRITIS
     Dosage: ONE 350 MILLIGRAMS
     Route: 048
  12. PREDNISONE [Concomitant]
     Indication: CROHN'S DISEASE
     Route: 048
  13. HYOSCYAMINE [Concomitant]
     Indication: PAIN
     Dosage: ONE OR TWO 0.125 MILLIGRAMS
  14. PROMETHAZINE [Concomitant]
     Indication: NAUSEA
     Dosage: ONE 25 MILLIGRAMS EVERY FOUR TO SIX HOURS AS REQUIRED
     Route: 048
  15. GABAPENTIN [Concomitant]
     Indication: PAIN
     Dosage: TWO 300 MILLIGRAMS EVERY 8 HOURS AS REQUIRED
     Route: 048
  16. VICODIN [Concomitant]
     Indication: PAIN
     Route: 048

REACTIONS (3)
  - INJECTION SITE ERYTHEMA [None]
  - INJECTION SITE REACTION [None]
  - INJECTION SITE URTICARIA [None]
